FAERS Safety Report 7989344-4 (Version None)
Quarter: 2011Q4

REPORT INFORMATION
  Report Type: 
  Country: None (occurrence: None)
  Receive Date: 20111216
  Receipt Date: 20111216
  Transmission Date: 20120403
  Serious: Yes (Life-Threatening)
  Sender: FDA-Public Use
  Company Number: None

PATIENT
  Sex: Female

DRUGS (1)
  1. DEPAKOTE ER [Suspect]
     Indication: COMPLEX PARTIAL SEIZURES
     Dosage: 500MG QHS PO
     Route: 048
     Dates: start: 19950101

REACTIONS (3)
  - CONVULSION [None]
  - PRODUCT SUBSTITUTION ISSUE [None]
  - STATUS EPILEPTICUS [None]
